FAERS Safety Report 6602729-3 (Version None)
Quarter: 2010Q1

REPORT INFORMATION
  Report Type: 
  Country: None (occurrence: None)
  Receive Date: 20100218
  Receipt Date: 20100204
  Transmission Date: 20100710
  Serious: Yes (Other)
  Sender: FDA-Public Use
  Company Number: 006369

PATIENT
  Sex: Female
  Weight: 55 kg

DRUGS (3)
  1. KEPPRA [Suspect]
     Indication: EPILEPSY
     Dosage: (500 MG TID ORAL)
     Route: 048
     Dates: start: 20100125, end: 20100128
  2. DIPHANTOINE (DIPHANTOINE) [Suspect]
     Dosage: (250 MG TID INTRAVENOUS (NOT OTHERWISE SPECIFIED))
     Route: 042
     Dates: start: 20100123, end: 20100123
  3. DEPAKENE [Suspect]
     Dosage: (500 MG TID ORAL)
     Route: 048
     Dates: end: 20100122

REACTIONS (1)
  - HEPATOTOXICITY [None]
